FAERS Safety Report 8552750-3 (Version None)
Quarter: 2012Q3

REPORT INFORMATION
  Report Type: 
  Country: None (occurrence: None)
  Receive Date: 20120731
  Receipt Date: 20120727
  Transmission Date: 20120928
  Serious: Yes (Other)
  Sender: FDA-Public Use
  Company Number: US-PFIZER INC-2012182927

PATIENT
  Sex: Male
  Weight: 74.83 kg

DRUGS (6)
  1. PREZISTA [Concomitant]
     Indication: ACQUIRED IMMUNODEFICIENCY SYNDROME
     Dosage: 400 MG, 2X/DAY
  2. LYRICA [Suspect]
     Indication: HERPES ZOSTER
     Dosage: 75 MG, 2X/DAY
     Route: 048
     Dates: start: 20120701, end: 20120701
  3. METOPROLOL [Concomitant]
     Dosage: UNK
  4. LYRICA [Suspect]
     Dosage: 150 MG, 2X/DAY
     Route: 048
     Dates: start: 20120701
  5. NORVIR [Concomitant]
     Indication: ACQUIRED IMMUNODEFICIENCY SYNDROME
     Dosage: UNK
  6. COMBIVIR [Concomitant]
     Indication: ACQUIRED IMMUNODEFICIENCY SYNDROME
     Dosage: UNK

REACTIONS (7)
  - DRY MOUTH [None]
  - EUPHORIC MOOD [None]
  - FEELING ABNORMAL [None]
  - DIPLOPIA [None]
  - VISUAL ACUITY REDUCED [None]
  - DISTURBANCE IN ATTENTION [None]
  - VISION BLURRED [None]
